FAERS Safety Report 21540208 (Version 2)
Quarter: 2022Q4

REPORT INFORMATION
  Report Type: Report from Study
  Country: DE (occurrence: None)
  Receive Date: 20221102
  Receipt Date: 20221111
  Transmission Date: 20230113
  Serious: Yes (Hospitalization)
  Sender: FDA-Public Use
  Company Number: DE-ROCHE-3206765

PATIENT
  Age: 38 Year
  Sex: Male
  Weight: 61 kg

DRUGS (2)
  1. ATEZOLIZUMAB [Suspect]
     Active Substance: ATEZOLIZUMAB
     Indication: Bile duct cancer
     Dosage: LAST ADMINISTERED BEFORE ONSET OF SAE: 30/SEP/2022, LAST DOSE GIVEN REPRESENTS CYCLE NO.: 5
     Route: 041
     Dates: start: 20220708
  2. DERAZANTINIB [Suspect]
     Active Substance: DERAZANTINIB
     Indication: Bile duct cancer
     Dosage: LAST ADMINISTERED BEFORE ONSET OF SAE: 18/OCT/2022, LAST DOSE GIVEN REPRESENTS CYCLE NO.: 5
     Route: 048
     Dates: start: 20220708

REACTIONS (1)
  - Pneumonitis [Recovered/Resolved]

NARRATIVE: CASE EVENT DATE: 20221021
